FAERS Safety Report 15015496 (Version 1)
Quarter: 2018Q2

REPORT INFORMATION
  Report Type: Spontaneous
  Country: GB (occurrence: GB)
  Receive Date: 20180615
  Receipt Date: 20180615
  Transmission Date: 20180711
  Serious: Yes (Hospitalization)
  Sender: FDA-Public Use
  Company Number: GB-LPDUSPRD-20181043

PATIENT
  Age: 36 Year
  Sex: Female
  Weight: 98 kg

DRUGS (5)
  1. FERINJECT [Suspect]
     Active Substance: FERRIC CARBOXYMALTOSE
     Dosage: 1 GM
     Route: 042
     Dates: start: 20180510, end: 20180510
  2. ADCAL [Concomitant]
     Active Substance: CALCIUM CARBONATE
     Dosage: 2 IN 1 DAY
     Route: 048
     Dates: start: 20180405
  3. OCTASA [Concomitant]
     Active Substance: MESALAMINE
     Dosage: 2.4 MG, 1 D
     Route: 048
     Dates: start: 20180405
  4. PREDNISOLONE. [Concomitant]
     Active Substance: PREDNISOLONE
     Dosage: CUMULATIVE DOSE 175MG
     Route: 048
     Dates: start: 20180405, end: 201805
  5. PARACETAMOL [Concomitant]
     Active Substance: ACETAMINOPHEN
     Dosage: 1GM AS REQUIRED
     Route: 048

REACTIONS (3)
  - Pruritus [Unknown]
  - Swelling face [Unknown]
  - Erythema [Unknown]

NARRATIVE: CASE EVENT DATE: 20180510
